FAERS Safety Report 4444872-3 (Version None)
Quarter: 2004Q3

REPORT INFORMATION
  Report Type: 
  Country: None (occurrence: None)
  Receive Date: 20040909
  Receipt Date: 20040812
  Transmission Date: 20050211
  Serious: Yes (Other)
  Sender: FDA-Public Use
  Company Number: US-GLAXOSMITHKLINE-A0522096A

PATIENT
  Sex: Female

DRUGS (2)
  1. PAXIL [Suspect]
     Indication: PANIC ATTACK
     Dosage: 20MG PER DAY
     Route: 048
  2. PAXIL CR [Suspect]
     Indication: PANIC ATTACK
     Route: 048

REACTIONS (10)
  - DEPRESSION [None]
  - DISORIENTATION [None]
  - FATIGUE [None]
  - HOT FLUSH [None]
  - KERATOCONJUNCTIVITIS SICCA [None]
  - PALPITATIONS [None]
  - PANIC ATTACK [None]
  - PSORIASIS [None]
  - SOMNOLENCE [None]
  - THERAPEUTIC RESPONSE DECREASED [None]
